FAERS Safety Report 8712947 (Version 2)
Quarter: 2013Q1

REPORT INFORMATION
  Report Type: Spontaneous
  Country: DE (occurrence: BR)
  Receive Date: 20120808
  Receipt Date: 20130211
  Transmission Date: 20140127
  Serious: Yes (Other)
  Sender: FDA-Public Use
  Company Number: BR-FRI-1000037617

PATIENT
  Sex: Female
  Weight: 59 kg

DRUGS (13)
  1. ROFLUMILAST [Suspect]
     Indication: BRONCHIECTASIS
     Dosage: 1 DF
     Route: 048
     Dates: start: 20120706, end: 201208
  2. DIOVANE [Concomitant]
     Indication: HYPERTENSION
     Dosage: 1 DF
     Route: 048
     Dates: start: 2004
  3. CLOPIDOGREL [Concomitant]
     Indication: ANTICOAGULANT THERAPY
     Dosage: 1 DF
     Route: 048
     Dates: start: 2007
  4. TEBONIN [Concomitant]
     Indication: LABYRINTHITIS
     Dosage: 1 DF
     Route: 048
     Dates: start: 2010
  5. VITERGAN MASTER [Concomitant]
     Indication: VITAMIN SUPPLEMENTATION
     Dosage: 1 DF
     Route: 048
     Dates: start: 2010
  6. ADDERA D3 [Concomitant]
     Indication: VITAMIN SUPPLEMENTATION
     Dosage: 6 GTT
     Route: 048
     Dates: start: 2010
  7. ARIMIDEX [Concomitant]
     Indication: PROPHYLAXIS
     Dosage: 1 DF
     Route: 048
     Dates: start: 2009
  8. MONALESS [Concomitant]
     Indication: BLOOD CHOLESTEROL
     Dosage: 1 DF
     Route: 048
     Dates: start: 2010
  9. PROCIMAX [Concomitant]
     Indication: DEPRESSION
     Dosage: 1 DF
     Route: 048
     Dates: start: 201207
  10. OXIMAX [Concomitant]
     Indication: ASTHMA
     Dosage: 1 DF
     Route: 055
     Dates: start: 2009
  11. PANTOPRAZOL [Concomitant]
     Indication: GASTRITIS
     Dosage: 1 DF
     Route: 048
     Dates: start: 20120705
  12. GLUCOREUMIN [Concomitant]
     Indication: OSTEOARTHRITIS
     Dosage: 1 DF
     Route: 048
     Dates: start: 2010
  13. AVAMYS [Concomitant]
     Indication: ASTHMA
     Dosage: 2 APPLICATIONS IN EACH NOSTRIL
     Route: 045
     Dates: start: 201207

REACTIONS (18)
  - Hypotension [Recovered/Resolved]
  - Hypertension [Recovered/Resolved]
  - Paraesthesia [Recovered/Resolved]
  - Hypoaesthesia oral [Recovered/Resolved]
  - Asthenia [Recovered/Resolved]
  - Malaise [Recovered/Resolved]
  - Tremor [Recovered/Resolved]
  - Depression [Recovered/Resolved]
  - Skin irritation [Recovered/Resolved]
  - Pruritus [Recovered/Resolved]
  - Muscular weakness [Recovered/Resolved]
  - Nausea [Recovered/Resolved]
  - Dizziness [Recovered/Resolved]
  - Gastritis [Recovered/Resolved]
  - Back pain [Recovered/Resolved]
  - Fatigue [Recovered/Resolved]
  - Dizziness [Recovered/Resolved]
  - Off label use [Unknown]
